FAERS Safety Report 20745410 (Version 1)
Quarter: 2022Q2

REPORT INFORMATION
  Report Type: Spontaneous
  Country: US (occurrence: US)
  Receive Date: 20220425
  Receipt Date: 20220425
  Transmission Date: 20220720
  Serious: No
  Sender: FDA-Public Use
  Company Number: US-Millicent Holdings Ltd.-MILL20220126

PATIENT
  Sex: Female

DRUGS (4)
  1. FEMRING [Suspect]
     Active Substance: ESTRADIOL ACETATE
     Indication: Menopausal symptoms
     Dosage: 0.10 MG / DAY
     Route: 067
     Dates: start: 20220320, end: 20220419
  2. FEMRING [Suspect]
     Active Substance: ESTRADIOL ACETATE
     Indication: Hysterectomy
  3. FEMRING [Suspect]
     Active Substance: ESTRADIOL ACETATE
     Indication: Menopausal symptoms
     Dosage: 0.05 MG / DAY
     Route: 067
     Dates: start: 2021
  4. FEMRING [Suspect]
     Active Substance: ESTRADIOL ACETATE
     Indication: Hysterectomy

REACTIONS (2)
  - Migraine [Not Recovered/Not Resolved]
  - Breast pain [Recovered/Resolved]

NARRATIVE: CASE EVENT DATE: 20210101
